FAERS Safety Report 8159196-0 (Version None)
Quarter: 2012Q1

REPORT INFORMATION
  Report Type: 
  Country: None (occurrence: None)
  Receive Date: 20120223
  Receipt Date: 20120221
  Transmission Date: 20120608
  Serious: Yes (Other)
  Sender: FDA-Public Use
  Company Number: TW-JNJFOC-20120210796

PATIENT
  Age: 40 Year
  Sex: Female

DRUGS (1)
  1. NICORETTE (MINT) [Suspect]
     Indication: SMOKING CESSATION THERAPY
     Route: 048
     Dates: start: 20100201

REACTIONS (4)
  - DEPENDENCE [None]
  - INTENTIONAL DRUG MISUSE [None]
  - MOUTH ULCERATION [None]
  - NASOPHARYNGITIS [None]
